FAERS Safety Report 8121717-1 (Version None)
Quarter: 2012Q1

REPORT INFORMATION
  Report Type: 
  Country: None (occurrence: None)
  Receive Date: 20120208
  Receipt Date: 20120202
  Transmission Date: 20120608
  Serious: Yes (Hospitalization, Other)
  Sender: FDA-Public Use
  Company Number: BR-PFIZER INC-2012029155

PATIENT
  Age: 72 Year
  Sex: Male

DRUGS (9)
  1. ISOSORBIDE MONONITRATE [Concomitant]
     Indication: CARDIAC DISORDER
     Dosage: 60 MG, 1X/DAY
     Dates: start: 20090101
  2. PLAVIX [Concomitant]
     Indication: CARDIAC DISORDER
     Dosage: UNK
     Dates: start: 20090101
  3. METOPROLOL SUCCINATE [Concomitant]
     Indication: HYPERTENSION
     Dosage: 100 MG, 1X/DAY
     Dates: start: 20090101
  4. LIPITOR [Suspect]
     Indication: BLOOD CHOLESTEROL INCREASED
     Dosage: 20 MG, 1X/DAY
     Route: 048
     Dates: start: 20080912, end: 20090101
  5. APRESOLINE [Concomitant]
     Indication: HYPERTENSION
     Dosage: 150 MG, 1X/DAY
     Dates: start: 20090101
  6. ZOLPIDEM [Concomitant]
     Indication: SLEEP DISORDER
     Dosage: 5 MG, 1X/DAY
     Dates: start: 20080101
  7. ASPIRIN [Concomitant]
     Indication: ANTICOAGULANT THERAPY
     Dosage: UNK
     Dates: start: 20080101
  8. GALVUS [Concomitant]
     Indication: DIABETES MELLITUS
     Dosage: UNK
     Dates: start: 20090101
  9. RANITIDINE [Concomitant]
     Indication: GASTRIC DISORDER
     Dosage: 150 MG, FASTING
     Dates: start: 20090101

REACTIONS (4)
  - RENAL DISORDER [None]
  - ARTERIAL OCCLUSIVE DISEASE [None]
  - PULMONARY OEDEMA [None]
  - ANAEMIA [None]
